FAERS Safety Report 16559380 (Version 1)
Quarter: 2019Q3

REPORT INFORMATION
  Report Type: Spontaneous
  Country: US (occurrence: US)
  Receive Date: 20190710
  Receipt Date: 20190710
  Transmission Date: 20191004
  Serious: Yes (Disabling, Other)
  Sender: FDA-Public Use
  Company Number: None

PATIENT
  Age: 35 Year
  Sex: Male
  Weight: 81 kg

DRUGS (1)
  1. CLOMIPHENE [Suspect]
     Active Substance: CLOMIPHENE
     Indication: PRODUCT USED FOR UNKNOWN INDICATION
     Dosage: ?          OTHER FREQUENCY:THREE TIMES/WEEK;?
     Route: 048
     Dates: start: 20150326, end: 20160715

REACTIONS (6)
  - Anxiety [None]
  - Insomnia [None]
  - Vision blurred [None]
  - Depression [None]
  - Alopecia [None]
  - Memory impairment [None]

NARRATIVE: CASE EVENT DATE: 20150326
